FAERS Safety Report 8624545-3 (Version None)
Quarter: 2012Q3

REPORT INFORMATION
  Report Type: 
  Country: None (occurrence: None)
  Receive Date: 20120827
  Receipt Date: 20120821
  Transmission Date: 20120928
  Serious: Yes (Life-Threatening, Disabling, Other)
  Sender: FDA-Public Use
  Company Number: US-JNJFOC-20120802433

PATIENT
  Sex: Male
  Weight: 92.99 kg

DRUGS (2)
  1. PRILOSEC [Concomitant]
     Indication: DYSPEPSIA
     Dosage: YEARS
  2. STELARA [Suspect]
     Indication: PSORIASIS
     Route: 058
     Dates: start: 20101015, end: 20111222

REACTIONS (1)
  - GUILLAIN-BARRE SYNDROME [None]
